FAERS Safety Report 19661877 (Version 1)
Quarter: 2021Q3

REPORT INFORMATION
  Report Type: Spontaneous
  Country: BE (occurrence: BE)
  Receive Date: 20210805
  Receipt Date: 20210805
  Transmission Date: 20211014
  Serious: Yes (Other)
  Sender: FDA-Public Use
  Company Number: BE-ROCHE-2878919

PATIENT
  Age: 56 Year

DRUGS (1)
  1. TECENTRIQ [Suspect]
     Active Substance: ATEZOLIZUMAB
     Indication: SMALL CELL LUNG CANCER
     Route: 065

REACTIONS (7)
  - Dysphagia [Unknown]
  - Blister [Unknown]
  - Acquired epidermolysis bullosa [Unknown]
  - Skin toxicity [Unknown]
  - Subacute cutaneous lupus erythematosus [Unknown]
  - Thyroiditis [Unknown]
  - Therapy partial responder [Unknown]

NARRATIVE: CASE EVENT DATE: 201901
